FAERS Safety Report 9283479 (Version 1)
Quarter: 2013Q2

REPORT INFORMATION
  Report Type: Spontaneous
  Country: US (occurrence: US)
  Receive Date: 20130510
  Receipt Date: 20130510
  Transmission Date: 20140414
  Serious: No
  Sender: FDA-Public Use
  Company Number: US-GLAXOSMITHKLINE-A1012082A

PATIENT
  Age: 75 Year
  Sex: Female
  Weight: 87.2 kg

DRUGS (2)
  1. TYKERB [Suspect]
     Indication: BREAST CANCER
     Dosage: 750MG PER DAY
     Route: 048
     Dates: start: 20121110
  2. LEVOXYL [Concomitant]

REACTIONS (2)
  - Folliculitis [Recovered/Resolved]
  - Cyst drainage [Recovered/Resolved]
